FAERS Safety Report 8364524-7 (Version None)
Quarter: 2012Q2

REPORT INFORMATION
  Report Type: 
  Country: None (occurrence: None)
  Receive Date: 20120516
  Receipt Date: 20120511
  Transmission Date: 20120825
  Serious: Yes (Death, Hospitalization)
  Sender: FDA-Public Use
  Company Number: US-MERCK-1205USA00194

PATIENT
  Age: 48 Year
  Sex: Male

DRUGS (11)
  1. ISENTRESS [Suspect]
     Indication: HIV INFECTION
     Route: 048
     Dates: start: 20110601, end: 20111022
  2. DIFLUCAN [Concomitant]
     Route: 065
  3. TRUVADA [Concomitant]
     Route: 065
  4. IRON (UNSPECIFIED) [Concomitant]
     Route: 065
  5. LOTRISONE [Concomitant]
     Route: 065
  6. DILANTIN [Concomitant]
     Route: 065
  7. ELAVIL (ALLOPURINOL) [Concomitant]
     Route: 065
  8. PHRENILIN [Concomitant]
     Route: 065
  9. FLONASE [Concomitant]
     Route: 065
  10. PREVACID [Concomitant]
     Route: 065
  11. CITALOPRAM [Concomitant]
     Route: 065

REACTIONS (1)
  - MYOCARDIAL INFARCTION [None]
